FAERS Safety Report 10506700 (Version 2)
Quarter: 2014Q4

REPORT INFORMATION
  Report Type: Spontaneous
  Country: FI (occurrence: FI)
  Receive Date: 20141009
  Receipt Date: 20141107
  Transmission Date: 20150528
  Serious: Yes (Other)
  Sender: FDA-Public Use
  Company Number: FI-AMGEN-FINSP2014076073

PATIENT
  Age: 79 Year
  Sex: Male

DRUGS (4)
  1. ASASANTIN [Concomitant]
     Active Substance: ASPIRIN\DIPYRIDAMOLE
     Dosage: 200MG/25 MG, BID
  2. NAPROXEN. [Concomitant]
     Active Substance: NAPROXEN
     Dosage: UNK
  3. PROLIA [Suspect]
     Active Substance: DENOSUMAB
     Indication: OSTEOPOROSIS
     Dosage: 60 MG, UNK
     Route: 058
     Dates: start: 20140901
  4. ATORVASTATIN [Concomitant]
     Active Substance: ATORVASTATIN
     Indication: HYPERCHOLESTEROLAEMIA
     Dosage: 10 MG, QD
     Route: 048

REACTIONS (16)
  - Confusional state [Unknown]
  - Musculoskeletal pain [Unknown]
  - Spinal pain [Unknown]
  - Head discomfort [Recovered/Resolved]
  - Cerebral artery embolism [Unknown]
  - Weight bearing difficulty [Unknown]
  - Malaise [Unknown]
  - Headache [Recovered/Resolved]
  - Cholelithotomy [Unknown]
  - Dyspnoea [Recovered/Resolved]
  - Hypoaesthesia [Unknown]
  - Blood pressure fluctuation [Recovered/Resolved]
  - Muscle tightness [Unknown]
  - Hypertension [Unknown]
  - Insomnia [Unknown]
  - Pain in extremity [Unknown]

NARRATIVE: CASE EVENT DATE: 201409
